FAERS Safety Report 16870009 (Version 1)
Quarter: 2019Q3

REPORT INFORMATION
  Report Type: Spontaneous
  Country: DE (occurrence: DE)
  Receive Date: 20190930
  Receipt Date: 20190930
  Transmission Date: 20191005
  Serious: Yes (Other)
  Sender: FDA-Public Use
  Company Number: DE-SHIRE-DE201931370

PATIENT

DRUGS (2)
  1. OBIZUR [Suspect]
     Active Substance: ANTIHEMOPHILIC FACTOR PORCINE, B-DOMAIN TRUNCATED RECOMBINANT
     Dosage: UNK
     Route: 065
     Dates: start: 20190911
  2. OBIZUR [Suspect]
     Active Substance: ANTIHEMOPHILIC FACTOR PORCINE, B-DOMAIN TRUNCATED RECOMBINANT
     Indication: ACQUIRED HAEMOPHILIA
     Dosage: UNK
     Route: 065
     Dates: start: 20190911

REACTIONS (4)
  - Therapy non-responder [Unknown]
  - Antibody test positive [Unknown]
  - Fall [Unknown]
  - Haemarthrosis [Recovered/Resolved]
